FAERS Safety Report 18661172 (Version 1)
Quarter: 2020Q4

REPORT INFORMATION
  Report Type: Spontaneous
  Country: CA (occurrence: CA)
  Receive Date: 20201224
  Receipt Date: 20201224
  Transmission Date: 20210114
  Serious: Yes (Hospitalization, Other)
  Sender: FDA-Public Use
  Company Number: CA-JNJFOC-20201233096

PATIENT
  Age: 39 Year
  Sex: Female

DRUGS (5)
  1. COCAINE [Suspect]
     Active Substance: COCAINE
     Indication: PRODUCT USED FOR UNKNOWN INDICATION
     Route: 065
  2. LEVAMISOLE [Suspect]
     Active Substance: LEVAMISOLE
     Indication: PRODUCT USED FOR UNKNOWN INDICATION
     Route: 065
  3. CARFENTANIL (11C) [Concomitant]
     Indication: PRODUCT USED FOR UNKNOWN INDICATION
     Route: 065
  4. DURAGESIC [Suspect]
     Active Substance: FENTANYL
     Indication: DRUG ABUSE
     Route: 042
  5. DURAGESIC [Suspect]
     Active Substance: FENTANYL
     Route: 042

REACTIONS (11)
  - Drug use disorder [Recovered/Resolved]
  - Rhinorrhoea [Recovered/Resolved]
  - Drug dependence [Recovered/Resolved]
  - Electrocardiogram QT prolonged [Unknown]
  - Drug abuse [Recovered/Resolved]
  - Drug withdrawal syndrome [Recovered/Resolved]
  - Intentional overdose [Recovered/Resolved]
  - Sedation [Recovered/Resolved]
  - Hyperhidrosis [Recovered/Resolved]
  - Maternal exposure during pregnancy [Recovered/Resolved]
  - Restlessness [Recovered/Resolved]
